FAERS Safety Report 6544739-0 (Version None)
Quarter: 2010Q1

REPORT INFORMATION
  Report Type: 
  Country: None (occurrence: None)
  Receive Date: 20100121
  Receipt Date: 20100115
  Transmission Date: 20100710
  Serious: Yes (Other)
  Sender: FDA-Public Use
  Company Number: GB-ASTRAZENECA-2010SE02289

PATIENT
  Sex: Male

DRUGS (3)
  1. CASODEX [Suspect]
     Indication: PROSTATE CANCER
     Route: 048
  2. PARACETAMOL [Concomitant]
     Indication: PROPHYLAXIS
     Route: 065
  3. ENOXAPARIN SODIUM [Concomitant]
     Indication: PROPHYLAXIS
     Route: 065

REACTIONS (1)
  - HAEMOLYTIC ANAEMIA [None]
